FAERS Safety Report 9440100 (Version 2)
Quarter: 2013Q3

REPORT INFORMATION
  Report Type: Spontaneous
  Country: AT (occurrence: AT)
  Receive Date: 20130805
  Receipt Date: 20130923
  Transmission Date: 20140515
  Serious: Yes (Other)
  Sender: FDA-Public Use
  Company Number: AT-ELI_LILLY_AND_COMPANY-AT201307009098

PATIENT
  Sex: Female

DRUGS (4)
  1. DULOXETINE HYDROCHLORIDE [Suspect]
     Indication: DEPRESSION
     Dosage: 60 MG, QD
     Dates: start: 20130625
  2. OLEOVIT [Concomitant]
  3. FOLSAN [Concomitant]
  4. LEVOLAC [Concomitant]

REACTIONS (1)
  - Hepatic enzyme increased [Recovering/Resolving]
